FAERS Safety Report 11333324 (Version 1)
Quarter: 2015Q3

REPORT INFORMATION
  Report Type: Spontaneous
  Country: US (occurrence: US)
  Receive Date: 20150803
  Receipt Date: 20150803
  Transmission Date: 20151125
  Serious: Yes (Other)
  Sender: FDA-Public Use
  Company Number: US-ELI_LILLY_AND_COMPANY-US200801006141

PATIENT
  Age: 30 Year
  Sex: Female

DRUGS (2)
  1. ZYPREXA [Suspect]
     Active Substance: OLANZAPINE
     Dates: start: 20080115, end: 20080115
  2. LAMICTAL [Concomitant]
     Active Substance: LAMOTRIGINE

REACTIONS (2)
  - Orthostatic hypotension [Unknown]
  - Syncope [Recovered/Resolved]

NARRATIVE: CASE EVENT DATE: 20080115
